FAERS Safety Report 21713631 (Version 1)
Quarter: 2022Q4

REPORT INFORMATION
  Report Type: Spontaneous
  Country: US (occurrence: US)
  Receive Date: 20221212
  Receipt Date: 20221212
  Transmission Date: 20230113
  Serious: No
  Sender: FDA-Public Use
  Company Number: US-AMERICAN REGENT INC-2022000434

PATIENT
  Sex: Male
  Weight: 119 kg

DRUGS (15)
  1. VENOFER [Suspect]
     Active Substance: IRON SUCROSE
     Indication: Iron deficiency anaemia
     Dosage: UNK, SINGLE
     Route: 042
     Dates: start: 20210430, end: 20210430
  2. VENOFER [Suspect]
     Active Substance: IRON SUCROSE
     Dosage: UNK GRAM (2GRAMS TOTAL DOSE)
     Route: 042
     Dates: end: 201609
  3. VENOFER [Suspect]
     Active Substance: IRON SUCROSE
     Dosage: UNK UNKNOWN
     Route: 042
     Dates: start: 20210723, end: 20210723
  4. VENOFER [Suspect]
     Active Substance: IRON SUCROSE
     Dosage: UNK UNKNOWN
     Route: 042
     Dates: start: 20210730, end: 20210730
  5. VENOFER [Suspect]
     Active Substance: IRON SUCROSE
     Dosage: UNK UNKNOWN
     Route: 042
     Dates: start: 20210827, end: 20210827
  6. VENOFER [Suspect]
     Active Substance: IRON SUCROSE
     Dosage: UNK UNKNOWN (TOTAL OF 5.4 G RECEIVED)
     Route: 042
     Dates: start: 202111, end: 202111
  7. ERGOCALCIFEROL [Concomitant]
     Active Substance: ERGOCALCIFEROL
     Indication: Vitamin D deficiency
     Dosage: TAKE 1 TABLET (50 MICROGRAM TOTAL) DAILY
     Route: 048
  8. INSULIN DETEMIR [Concomitant]
     Active Substance: INSULIN DETEMIR
     Indication: Product used for unknown indication
     Dosage: INJECT 0.28 MILLILITER (28 UNITS TOTAL) NIGHTLY
     Route: 058
  9. INSULIN LISPRO [Concomitant]
     Active Substance: INSULIN LISPRO
     Indication: Product used for unknown indication
     Dosage: INJECT 0.06 MILLILITER (12 UNITS TOTAL) 3 TIMES A DAY
     Route: 058
  10. LIDOCAINE [Concomitant]
     Active Substance: LIDOCAINE
     Indication: Product used for unknown indication
     Dosage: APPLY 1 APPLICATION DAILY
     Route: 061
  11. LOSARTAN [Concomitant]
     Active Substance: LOSARTAN
     Indication: Product used for unknown indication
     Dosage: TAKE 1 TABLET (25 MILLIGRAM TOTAL) DAILY
     Route: 048
  12. MELOXICAM [Concomitant]
     Active Substance: MELOXICAM
     Indication: Product used for unknown indication
     Dosage: TAKE 1 TABLET (7.5 MILLIGRAM TOTAL) 2 TIMES A DAY
     Route: 048
  13. METFORMIN [Concomitant]
     Active Substance: METFORMIN HYDROCHLORIDE
     Indication: Product used for unknown indication
     Dosage: TAKE 1 TABLET (500 MILLIGRAM TOTAL) 2 TIMES A DAY WITH MEALS
     Route: 048
  14. PANTOPRAZOLE [Concomitant]
     Active Substance: PANTOPRAZOLE
     Indication: Product used for unknown indication
     Dosage: TAKE 1 TABLET (40 MILLIGRAM TOTAL) DAILY
     Route: 048
  15. TADALAFIL [Concomitant]
     Active Substance: TADALAFIL
     Indication: Product used for unknown indication
     Dosage: TAKE 1 TABLET DAILY AS NEEDED
     Route: 048

REACTIONS (3)
  - Vein disorder [Recovered/Resolved]
  - Peripheral swelling [Recovered/Resolved]
  - Feeling hot [Not Recovered/Not Resolved]

NARRATIVE: CASE EVENT DATE: 20200101
